FAERS Safety Report 20936995 (Version 1)
Quarter: 2022Q2

REPORT INFORMATION
  Report Type: Spontaneous
  Country: US (occurrence: None)
  Receive Date: 20220609
  Receipt Date: 20220609
  Transmission Date: 20220721
  Serious: No
  Sender: FDA-Public Use
  Company Number: US-ROCHE-2900119

PATIENT
  Sex: Male

DRUGS (8)
  1. ACTEMRA [Suspect]
     Active Substance: TOCILIZUMAB
     Indication: Systemic scleroderma
     Dosage: 0.9 ML
     Route: 058
     Dates: start: 20210621
  2. ACTEMRA [Suspect]
     Active Substance: TOCILIZUMAB
  3. FLAX OIL [Concomitant]
  4. METRONIDAZOLE [Concomitant]
     Active Substance: METRONIDAZOLE
  5. OMEPRAZOLE [Concomitant]
     Active Substance: OMEPRAZOLE
  6. PREDNISONE [Concomitant]
     Active Substance: PREDNISONE
  7. TAMSULOSIN [Concomitant]
     Active Substance: TAMSULOSIN
     Dosage: TAMSULOSIN H
  8. CREON [Concomitant]
     Active Substance: PANCRELIPASE AMYLASE\PANCRELIPASE LIPASE\PANCRELIPASE PROTEASE
     Dosage: CPE 12000-38 UNIT

REACTIONS (2)
  - Drug ineffective [Unknown]
  - No adverse event [Unknown]
